FAERS Safety Report 9917613 (Version 1)
Quarter: 2014Q1

REPORT INFORMATION
  Report Type: Spontaneous
  Country: GB (occurrence: GB)
  Receive Date: 20140221
  Receipt Date: 20140221
  Transmission Date: 20141002
  Serious: Yes (Other)
  Sender: FDA-Public Use
  Company Number: PHHY2014GB020000

PATIENT
  Sex: Male

DRUGS (1)
  1. SOMATROPIN [Suspect]
     Dosage: 2 IU, UNK
     Route: 058

REACTIONS (5)
  - Renal disorder [Unknown]
  - Liver disorder [Unknown]
  - Pain [Unknown]
  - Rash [Unknown]
  - Erythema [Unknown]
